FAERS Safety Report 12383260 (Version 1)
Quarter: 2016Q2

REPORT INFORMATION
  Report Type: Spontaneous
  Country: GB (occurrence: GB)
  Receive Date: 20160518
  Receipt Date: 20160518
  Transmission Date: 20160815
  Serious: Yes (Hospitalization)
  Sender: FDA-Public Use
  Company Number: PHHY2016GB065586

PATIENT
  Age: 68 Year
  Sex: Female
  Weight: 50 kg

DRUGS (2)
  1. DONEPEZIL. [Suspect]
     Active Substance: DONEPEZIL
     Indication: DEMENTIA ALZHEIMER^S TYPE
     Dosage: 5 MG, QD DOSE INCREASED LATE THAT YEAR
     Route: 048
     Dates: start: 20150901
  2. DONEPEZIL. [Suspect]
     Active Substance: DONEPEZIL
     Dosage: 10 MG,  INCREASED LATE LAST YEAR.
     Route: 048
     Dates: start: 2015, end: 20160121

REACTIONS (2)
  - Retinal detachment [Not Recovered/Not Resolved]
  - Cognitive disorder [Not Recovered/Not Resolved]

NARRATIVE: CASE EVENT DATE: 20151220
